FAERS Safety Report 8288830-X (Version None)
Quarter: 2012Q2

REPORT INFORMATION
  Report Type: 
  Country: None (occurrence: None)
  Receive Date: 20120417
  Receipt Date: 20120406
  Transmission Date: 20120825
  Serious: No
  Sender: FDA-Public Use
  Company Number: US-BIOGENIDEC-2012BI012656

PATIENT
  Age: 57 Year
  Sex: Male

DRUGS (3)
  1. TYSABRI [Suspect]
     Route: 042
     Dates: start: 20100330, end: 20110301
  2. TYSABRI [Suspect]
     Indication: MULTIPLE SCLEROSIS
     Route: 042
     Dates: start: 20070711, end: 20091229
  3. TYSABRI [Suspect]
     Route: 042
     Dates: start: 20110629

REACTIONS (4)
  - COLOUR BLINDNESS [None]
  - HEMIPARESIS [None]
  - VISUAL ACUITY REDUCED [None]
  - MULTIPLE SCLEROSIS RELAPSE [None]
